FAERS Safety Report 4669215-1 (Version None)
Quarter: 2005Q2

REPORT INFORMATION
  Report Type: 
  Country: None (occurrence: None)
  Receive Date: 20050519
  Receipt Date: 20050513
  Transmission Date: 20051028
  Serious: Yes (Hospitalization)
  Sender: FDA-Public Use
  Company Number: STA-AE-05-016

PATIENT
  Sex: Female

DRUGS (1)
  1. ATENOLOL [Suspect]
     Dosage: ORAL
     Route: 048

REACTIONS (2)
  - SWOLLEN TONGUE [None]
  - VASODILATATION [None]
